FAERS Safety Report 19349709 (Version 1)
Quarter: 2021Q2

REPORT INFORMATION
  Report Type: Other
  Country: DE (occurrence: DE)
  Receive Date: 20210531
  Receipt Date: 20210531
  Transmission Date: 20210717
  Serious: Yes (Death, Other)
  Sender: FDA-Public Use
  Company Number: DE-ROCHE-2836605

PATIENT

DRUGS (6)
  1. METHOTREXATE. [Suspect]
     Active Substance: METHOTREXATE
     Indication: B-CELL LYMPHOMA
     Dosage: 30 ? 60 ? 90 ? 120 ? 150 MG/M2 I.V. BOLUS, DAYS 1, 8, 15
     Route: 042
  2. ENOXAPARIN [Concomitant]
     Active Substance: ENOXAPARIN
     Route: 058
  3. RITUXIMAB. [Suspect]
     Active Substance: RITUXIMAB
     Indication: B-CELL LYMPHOMA
     Dosage: DAY 1
     Route: 042
  4. LENALIDOMIDE [Suspect]
     Active Substance: LENALIDOMIDE
     Indication: B-CELL LYMPHOMA
     Dosage: DAYS 1 ? 21
     Route: 048
  5. LEUCOVORIN. [Suspect]
     Active Substance: LEUCOVORIN
     Indication: B-CELL LYMPHOMA
     Dosage: DAYS 2, 9, 16
     Route: 048
  6. CYTARABINE. [Suspect]
     Active Substance: CYTARABINE
     Indication: B-CELL LYMPHOMA
     Dosage: 75 ? 150 ? 225 ? 300 ? 375 MG/M2 I.V. BOLUS, DAYS 1, 8, 15
     Route: 042

REACTIONS (17)
  - Infection [Unknown]
  - Leukopenia [Unknown]
  - Alanine aminotransferase increased [Unknown]
  - Neutropenia [Unknown]
  - Blood bilirubin increased [Unknown]
  - Hypercalcaemia [Unknown]
  - Vomiting [Unknown]
  - Diarrhoea [Unknown]
  - Blood creatinine increased [Unknown]
  - Sepsis [Fatal]
  - Anaemia [Unknown]
  - Rash [Unknown]
  - Fatigue [Unknown]
  - Embolism [Unknown]
  - Thrombocytopenia [Unknown]
  - Pyrexia [Unknown]
  - Stomatitis [Unknown]
